FAERS Safety Report 6120694-2 (Version None)
Quarter: 2009Q1

REPORT INFORMATION
  Report Type: 
  Country: None (occurrence: None)
  Receive Date: 20090317
  Receipt Date: 20090303
  Transmission Date: 20090719
  Serious: Yes (Other)
  Sender: FDA-Public Use
  Company Number: US-ROCHE-610214

PATIENT
  Sex: Female
  Weight: 64.4 kg

DRUGS (4)
  1. CAPECITABINE [Suspect]
     Indication: BREAST CANCER
     Dosage: PER 3 WEEKS
     Route: 048
     Dates: start: 20081014
  2. CAPECITABINE [Suspect]
     Dosage: RECEIVED 2600 MG IN AM AND 2600 MG IN PM
     Route: 048
     Dates: start: 20081031, end: 20090105
  3. AVASTIN [Concomitant]
     Indication: BREAST CANCER
     Dosage: PER THREE WEEKS
     Route: 042
     Dates: start: 20081024, end: 20090105
  4. GEMZAR [Concomitant]
     Indication: BREAST CANCER
     Dosage: DAY 1 AND DAY 8, PER THREE WEEKS
     Route: 042
     Dates: start: 20081024, end: 20090105

REACTIONS (4)
  - NEOPLASM PROGRESSION [None]
  - PAIN IN EXTREMITY [None]
  - PALMAR-PLANTAR ERYTHRODYSAESTHESIA SYNDROME [None]
  - PLATELET COUNT DECREASED [None]
